FAERS Safety Report 5400921-7 (Version None)
Quarter: 2007Q3

REPORT INFORMATION
  Report Type: 
  Country: None (occurrence: None)
  Receive Date: 20070730
  Receipt Date: 20070314
  Transmission Date: 20080115
  Serious: No
  Sender: FDA-Public Use
  Company Number: A0631433A

PATIENT
  Age: 5 Month
  Sex: Male
  Weight: 7.3 kg

DRUGS (2)
  1. ZANTAC 150 [Suspect]
     Dosage: .7ML TWICE PER DAY
     Route: 048
  2. NO CONCURRENT MEDICATION [Concomitant]

REACTIONS (5)
  - ABDOMINAL PAIN [None]
  - INSOMNIA [None]
  - OPISTHOTONUS [None]
  - PHARMACEUTICAL PRODUCT COMPLAINT [None]
  - SCREAMING [None]
